FAERS Safety Report 17718232 (Version 1)
Quarter: 2020Q3

REPORT INFORMATION
  Report Type: Report from Study
  Country: BR (occurrence: BR)
  Receive Date: 20200428
  Receipt Date: 20200428
  Transmission Date: 20201104
  Serious: Yes (Other)
  Sender: FDA-Public Use
  Company Number: NVSC2020BR079469

PATIENT
  Age: 36 Year
  Sex: Female

DRUGS (3)
  1. COSENTYX [Suspect]
     Active Substance: SECUKINUMAB
     Indication: ANKYLOSING SPONDYLITIS
     Dosage: UNK
     Route: 065
     Dates: start: 20190226
  2. COSENTYX [Suspect]
     Active Substance: SECUKINUMAB
     Dosage: UNK
     Route: 065
     Dates: start: 20200101
  3. DICLOFENAC POTASSIUM. [Suspect]
     Active Substance: DICLOFENAC POTASSIUM
     Indication: PAIN
     Route: 065

REACTIONS (3)
  - Pain [Recovering/Resolving]
  - Ankylosing spondylitis [Recovering/Resolving]
  - Gait disturbance [Recovering/Resolving]

NARRATIVE: CASE EVENT DATE: 20190430
